FAERS Safety Report 5108113-6 (Version None)
Quarter: 2006Q3

REPORT INFORMATION
  Report Type: 
  Country: None (occurrence: None)
  Receive Date: 20060919
  Receipt Date: 20060915
  Transmission Date: 20061208
  Serious: Yes (Other)
  Sender: FDA-Public Use
  Company Number: US-GLAXOSMITHKLINE-A0620319A

PATIENT
  Age: 62 Year
  Sex: Female

DRUGS (2)
  1. FLONASE [Suspect]
     Indication: RHINITIS ALLERGIC
     Dosage: 1SPR PER DAY
     Route: 045
     Dates: start: 20060901, end: 20060902
  2. NO CONCURRENT MEDICATION [Concomitant]

REACTIONS (5)
  - ERYTHEMA [None]
  - LUPUS-LIKE SYNDROME [None]
  - MOUTH ULCERATION [None]
  - RASH [None]
  - SWELLING FACE [None]
